FAERS Safety Report 9332007 (Version 1)
Quarter: 2013Q2

REPORT INFORMATION
  Report Type: Spontaneous
  Country: GB (occurrence: None)
  Receive Date: 20130603
  Receipt Date: 20130603
  Transmission Date: 20140414
  Serious: Yes (Hospitalization)
  Sender: FDA-Public Use
  Company Number: GER/UKI/13/0029670

PATIENT
  Age: 61 Year
  Sex: Female

DRUGS (24)
  1. ZOLEDRONIC ACID (ZOLEDRONIC ACID) [Suspect]
     Indication: OSTEOPOROSIS
     Route: 042
     Dates: start: 20130426, end: 20130426
  2. MABTHERA [Suspect]
     Indication: RHEUMATOID ARTHRITIS
     Route: 042
     Dates: start: 20130118
  3. NOVORAPID [Concomitant]
  4. ATORVASTATIN [Concomitant]
  5. CALCICHEW [Concomitant]
  6. CANDESARTAN [Concomitant]
  7. CLOPIDOGREL [Concomitant]
  8. CYCLIZINE [Concomitant]
  9. DOSULEPIN [Concomitant]
  10. FUROSEMIDE [Concomitant]
  11. GAVISCON [Concomitant]
  12. LANTUS [Concomitant]
  13. LEVOTHYROXINE [Concomitant]
  14. MORPHINE SULFATE [Concomitant]
  15. PANTOPRAZOLE [Concomitant]
  16. PREDNISOLONE [Concomitant]
  17. PREGABALIN [Concomitant]
  18. PROCHLORPERAZINE [Concomitant]
  19. SALBUTAMOL [Concomitant]
  20. SERETIDE [Concomitant]
  21. TRAMADOL [Concomitant]
  22. URSODEOXYCHOLIC ACID [Concomitant]
  23. VISCOTEARS [Concomitant]
  24. ZOLPIDEM [Concomitant]

REACTIONS (3)
  - Headache [None]
  - Neutropenic sepsis [None]
  - Osteomyelitis [None]
